FAERS Safety Report 13983820 (Version 3)
Quarter: 2017Q4

REPORT INFORMATION
  Report Type: Spontaneous
  Country: US (occurrence: US)
  Receive Date: 20170918
  Receipt Date: 20171116
  Transmission Date: 20180321
  Serious: Yes (Hospitalization, Other)
  Sender: FDA-Public Use
  Company Number: US-009507513-1709USA007953

PATIENT
  Age: 43 Year
  Sex: Female
  Weight: 73.47 kg

DRUGS (5)
  1. KEYTRUDA [Suspect]
     Active Substance: PEMBROLIZUMAB
     Indication: NEOPLASM MALIGNANT
     Dosage: 200 MG, Q3W
     Route: 042
     Dates: start: 20170125, end: 20170605
  2. KEYTRUDA [Suspect]
     Active Substance: PEMBROLIZUMAB
     Indication: LUNG ADENOCARCINOMA
  3. POTASSIUM SODIUM HYDROGEN CITRATE [Concomitant]
     Route: 048
  4. SYNTHROID [Concomitant]
     Active Substance: LEVOTHYROXINE SODIUM
  5. HYDROCODONE [Concomitant]
     Active Substance: HYDROCODONE

REACTIONS (23)
  - Seizure [Recovered/Resolved]
  - Renal injury [Unknown]
  - Poor quality sleep [Unknown]
  - Swelling face [Recovering/Resolving]
  - Hypothyroidism [Recovering/Resolving]
  - Malaise [Recovered/Resolved]
  - Muscle spasms [Recovered/Resolved with Sequelae]
  - Pruritus [Recovered/Resolved]
  - Thyroid disorder [Unknown]
  - Blood thyroid stimulating hormone decreased [Unknown]
  - Hypoaesthesia [Recovering/Resolving]
  - Paraesthesia [Recovered/Resolved with Sequelae]
  - Fatigue [Recovered/Resolved with Sequelae]
  - Liver injury [Unknown]
  - Burning sensation [Unknown]
  - Feeling cold [Unknown]
  - Temperature intolerance [Unknown]
  - Blood creatinine increased [Recovered/Resolved]
  - Anxiety [Recovered/Resolved with Sequelae]
  - Cortisol decreased [Unknown]
  - Blood creatinine increased [Recovered/Resolved]
  - Adrenal insufficiency [Recovering/Resolving]
  - Dry skin [Unknown]

NARRATIVE: CASE EVENT DATE: 2017
